FAERS Safety Report 22858016 (Version 5)
Quarter: 2024Q2

REPORT INFORMATION
  Report Type: Report from Study
  Country: US (occurrence: US)
  Receive Date: 20230824
  Receipt Date: 20240527
  Transmission Date: 20240716
  Serious: Yes (Hospitalization, Other)
  Sender: FDA-Public Use
  Company Number: US-ABBVIE-5377980

PATIENT
  Age: 81 Year
  Sex: Female

DRUGS (1)
  1. SKYRIZI [Suspect]
     Active Substance: RISANKIZUMAB-RZAA
     Indication: Psoriatic arthropathy
     Route: 058

REACTIONS (7)
  - Accident [Unknown]
  - Fall [Recovered/Resolved]
  - Upper limb fracture [Recovering/Resolving]
  - Upper limb fracture [Not Recovered/Not Resolved]
  - Pain [Unknown]
  - Fall [Recovering/Resolving]
  - Upper limb fracture [Not Recovered/Not Resolved]

NARRATIVE: CASE EVENT DATE: 20230801
